APPROVED DRUG PRODUCT: ROPINIROLE HYDROCHLORIDE
Active Ingredient: ROPINIROLE HYDROCHLORIDE
Strength: EQ 2MG BASE
Dosage Form/Route: TABLET;ORAL
Application: A077852 | Product #004
Applicant: HIKMA PHARMACEUTICALS USA INC
Approved: May 5, 2008 | RLD: No | RS: No | Type: DISCN